APPROVED DRUG PRODUCT: ARICEPT
Active Ingredient: DONEPEZIL HYDROCHLORIDE
Strength: 5MG
Dosage Form/Route: TABLET;ORAL
Application: N020690 | Product #002 | TE Code: AB
Applicant: EISAI INC
Approved: Nov 25, 1996 | RLD: Yes | RS: No | Type: RX